FAERS Safety Report 14173491 (Version 1)
Quarter: 2017Q4

REPORT INFORMATION
  Report Type: Spontaneous
  Country: LB (occurrence: LB)
  Receive Date: 20171109
  Receipt Date: 20171109
  Transmission Date: 20180321
  Serious: Yes (Death, Hospitalization, Other)
  Sender: FDA-Public Use
  Company Number: LB-009507513-1711LBN002249

PATIENT
  Age: 79 Year
  Sex: Male

DRUGS (2)
  1. XELODA [Suspect]
     Active Substance: CAPECITABINE
  2. KEYTRUDA [Suspect]
     Active Substance: PEMBROLIZUMAB
     Indication: GASTRIC CANCER
     Dosage: 200 MG, Q3W
     Route: 042

REACTIONS (8)
  - Decreased appetite [Unknown]
  - Death [Fatal]
  - Ophthalmoplegia [Unknown]
  - Myositis [Recovered/Resolved]
  - Atrioventricular block complete [Recovered/Resolved]
  - Dysphagia [Recovered/Resolved]
  - Myasthenia gravis [Unknown]
  - Cachexia [Unknown]
